FAERS Safety Report 5797880-4 (Version None)
Quarter: 2008Q2

REPORT INFORMATION
  Report Type: 
  Country: None (occurrence: None)
  Receive Date: 20080601
  Receipt Date: 20080325
  Transmission Date: 20081010
  Serious: No
  Sender: FDA-Public Use
  Company Number: US200802000820

PATIENT
  Age: 73 Year
  Sex: Male

DRUGS (8)
  1. BYETTA [Suspect]
     Indication: TYPE 2 DIABETES MELLITUS
     Dosage: 5 UG, 2/D, SUBCUTANEOUS : 10 UG, 2/D, SUBCUTANEOUS
     Route: 058
     Dates: start: 20080101, end: 20080101
  2. BYETTA [Suspect]
     Indication: TYPE 2 DIABETES MELLITUS
     Dosage: 5 UG, 2/D, SUBCUTANEOUS : 10 UG, 2/D, SUBCUTANEOUS
     Route: 058
     Dates: start: 20071211, end: 20080111
  3. WARFARIN SODIUM [Concomitant]
  4. LISINOPRIL [Concomitant]
  5. METFORMIN HCL [Concomitant]
  6. GLUCOTROL [Concomitant]
  7. COREG [Concomitant]
  8. AMIODARONE HCL [Concomitant]

REACTIONS (2)
  - ABDOMINAL MASS [None]
  - BLOOD GLUCOSE INCREASED [None]
